FAERS Safety Report 4402872-3 (Version None)
Quarter: 2004Q3

REPORT INFORMATION
  Report Type: 
  Country: None (occurrence: None)
  Receive Date: 20040719
  Receipt Date: 20040706
  Transmission Date: 20050211
  Serious: Yes (Death)
  Sender: FDA-Public Use
  Company Number: B0338509A

PATIENT
  Sex: 0

DRUGS (6)
  1. ALKERAN [Suspect]
     Indication: NEOPLASM MALIGNANT
     Dosage: 300 MG/M2/INTRAVENOUS INFUSION
  2. AMIFOSTINE STERILE POWDER (AMIFOSTINE) [Suspect]
     Dosage: 740 MG/M2/INTRAVENOUS INFUSION
  3. STEM CELL TRANSPLANT [Concomitant]
  4. DEXAMETHASONE [Concomitant]
  5. ANTI-EMETIC [Concomitant]
  6. CALCIUM SALT [Concomitant]

REACTIONS (4)
  - ATRIAL FIBRILLATION [None]
  - HEPATIC NECROSIS [None]
  - MULTI-ORGAN FAILURE [None]
  - VENOOCCLUSIVE LIVER DISEASE [None]
